FAERS Safety Report 22240110 (Version 1)
Quarter: 2023Q2

REPORT INFORMATION
  Report Type: Spontaneous
  Country: CN (occurrence: CN)
  Receive Date: 20230421
  Receipt Date: 20230421
  Transmission Date: 20230721
  Serious: Yes (Hospitalization)
  Sender: FDA-Public Use
  Company Number: CN-PFIZER INC-PV202300071934

PATIENT
  Age: 53 Year
  Sex: Female
  Weight: 73 kg

DRUGS (1)
  1. UNASYN [Suspect]
     Active Substance: AMPICILLIN SODIUM\SULBACTAM SODIUM
     Indication: Symptomatic treatment
     Dosage: 1.5 G, 2X/DAY
     Route: 041
     Dates: start: 20230309, end: 20230312

REACTIONS (10)
  - Rash maculo-papular [Recovering/Resolving]
  - Flushing [Unknown]
  - Swelling [Unknown]
  - Dermatitis allergic [Unknown]
  - Oedema peripheral [Unknown]
  - Pruritus [Unknown]
  - Rash [Unknown]
  - Erythema [Unknown]
  - Papule [Unknown]
  - Rash erythematous [Unknown]

NARRATIVE: CASE EVENT DATE: 20230301
